FAERS Safety Report 22051351 (Version 1)
Quarter: 2023Q1

REPORT INFORMATION
  Report Type: Spontaneous
  Country: JP (occurrence: JP)
  Receive Date: 20230301
  Receipt Date: 20230301
  Transmission Date: 20230417
  Serious: Yes (Other)
  Sender: FDA-Public Use
  Company Number: JP-SA-2023SA063278

PATIENT
  Sex: Female

DRUGS (2)
  1. ALLEGRA [Suspect]
     Active Substance: FEXOFENADINE HYDROCHLORIDE
     Indication: Product used for unknown indication
     Dosage: UNK
     Route: 048
     Dates: start: 202302
  2. HERBALS [Concomitant]
     Active Substance: HERBALS
     Indication: Rhinitis
     Dosage: UNK
     Route: 065
     Dates: start: 20230223, end: 20230223

REACTIONS (1)
  - Eye haemorrhage [Unknown]

NARRATIVE: CASE EVENT DATE: 20230201
